FAERS Safety Report 8888395 (Version 1)
Quarter: 2012Q4

REPORT INFORMATION
  Report Type: 
  Country: US (occurrence: US)
  Receive Date: 20121106
  Receipt Date: 20121106
  Transmission Date: 20130627
  Serious: Yes (Other)
  Sender: FDA-Public Use
  Company Number: PHEH2012US017746

PATIENT
  Age: 52 Year
  Sex: Female
  Weight: 125 kg

DRUGS (5)
  1. RECLAST [Suspect]
     Indication: OSTEOPOROSIS
     Dosage: 5 mg, yealy
     Route: 042
     Dates: start: 20120606
  2. SYNTHROID [Concomitant]
     Dosage: UNK UKN, UNK
     Route: 048
  3. COMBIVENT [Concomitant]
     Dosage: UNK UKN, UNK
  4. CALCIUM + VITAMIN D [Concomitant]
     Dosage: UNK UKN, UNK
  5. LOPRESSOR [Concomitant]
     Dosage: UNK UKN, UNK
     Route: 048

REACTIONS (1)
  - Jaw disorder [Recovering/Resolving]
